FAERS Safety Report 10243564 (Version 1)
Quarter: 2014Q2

REPORT INFORMATION
  Report Type: Spontaneous
  Country: US (occurrence: US)
  Receive Date: 20140618
  Receipt Date: 20140618
  Transmission Date: 20141212
  Serious: No
  Sender: FDA-Public Use
  Company Number: US-PFIZER INC-2014164053

PATIENT
  Age: 36 Year
  Sex: Female
  Weight: 97 kg

DRUGS (1)
  1. ADVIL MIGRAINE [Suspect]
     Indication: MIGRAINE
     Dosage: UNK
     Route: 048
     Dates: start: 201406

REACTIONS (2)
  - Drug ineffective [Unknown]
  - Intentional product misuse [Unknown]
